FAERS Safety Report 8499772 (Version 10)
Quarter: 2015Q3

REPORT INFORMATION
  Report Type: Report from Study
  Country: NL (occurrence: NL)
  Receive Date: 20120409
  Receipt Date: 20150918
  Transmission Date: 20151125
  Serious: Yes (Death, Hospitalization, Other)
  Sender: FDA-Public Use
  Company Number: PHHO2012NL005251

PATIENT
  Age: 87 Year
  Sex: Male
  Weight: 86 kg

DRUGS (3)
  1. METOPROLOL [Suspect]
     Active Substance: METOPROLOL
     Indication: CORONARY ARTERY DISEASE
     Dosage: 25 MG, UNK
     Route: 065
     Dates: start: 20120220, end: 20120224
  2. INDOMETHACIN. [Suspect]
     Active Substance: INDOMETHACIN
     Indication: GOUT
     Route: 065
  3. ENALAPRIL [Suspect]
     Active Substance: ENALAPRIL
     Indication: CARDIAC FAILURE
     Dosage: UNK
     Route: 048
     Dates: start: 20110331, end: 20130503

REACTIONS (12)
  - Chronic obstructive pulmonary disease [Not Recovered/Not Resolved]
  - Cardiac failure [Recovered/Resolved]
  - Microcytic anaemia [Fatal]
  - Cardiac failure [Fatal]
  - Cardiac failure [Recovered/Resolved]
  - Cardiac failure [Recovered/Resolved]
  - Myocardial infarction [Recovered/Resolved]
  - Myocardial infarction [Unknown]
  - Hypokalaemia [Fatal]
  - Circulatory collapse [Recovered/Resolved]
  - Cardiac failure [Recovered/Resolved]
  - Gastrointestinal disorder [Fatal]

NARRATIVE: CASE EVENT DATE: 20120220
